FAERS Safety Report 21886780 (Version 1)
Quarter: 2023Q1

REPORT INFORMATION
  Report Type: Report from Study
  Country: CA (occurrence: CA)
  Receive Date: 20230119
  Receipt Date: 20230119
  Transmission Date: 20230418
  Serious: Yes (Other)
  Sender: FDA-Public Use
  Company Number: CA-002147023-NVSC2023CA009361

PATIENT
  Sex: Male
  Weight: 59 kg

DRUGS (1)
  1. PIRFENIDONE [Suspect]
     Active Substance: PIRFENIDONE
     Indication: Interstitial lung disease
     Dosage: 801 MG, TID
     Route: 048

REACTIONS (8)
  - Interstitial lung disease [Unknown]
  - Pulmonary fibrosis [Unknown]
  - Pleural thickening [Unknown]
  - Disease progression [Unknown]
  - Pulmonary artery dilatation [Unknown]
  - Bronchiectasis [Unknown]
  - Emphysema [Unknown]
  - Spirometry abnormal [Unknown]
